FAERS Safety Report 23298941 (Version 1)
Quarter: 2023Q4

REPORT INFORMATION
  Report Type: Report from Study
  Country: US (occurrence: US)
  Receive Date: 20231215
  Receipt Date: 20231215
  Transmission Date: 20240110
  Serious: Yes (Other)
  Sender: FDA-Public Use
  Company Number: US-ABBVIE-5533204

PATIENT
  Age: 84 Year
  Sex: Female

DRUGS (2)
  1. HUMIRA [Suspect]
     Active Substance: ADALIMUMAB
     Indication: Colitis ulcerative
     Dosage: CITRATE FREE?FORM STRENGTH WAS 40 MILLIGRAMS?LAST ADMIN  DATE WAS 2023
     Route: 058
     Dates: start: 20230329
  2. HUMIRA [Suspect]
     Active Substance: ADALIMUMAB
     Dosage: CITRATE FREE?FORM STRENGTH WAS 40 MILLIGRAMS?DRUG START DATE WAS 2023
     Route: 058

REACTIONS (1)
  - Arthropathy [Recovered/Resolved]

NARRATIVE: CASE EVENT DATE: 20230501
